FAERS Safety Report 16583695 (Version 2)
Quarter: 2019Q3

REPORT INFORMATION
  Report Type: Spontaneous
  Country: US (occurrence: US)
  Receive Date: 20190717
  Receipt Date: 20190823
  Transmission Date: 20191004
  Serious: No
  Sender: FDA-Public Use
  Company Number: US-PFIZER INC-2019300964

PATIENT
  Age: 76 Year
  Sex: Male

DRUGS (3)
  1. PRAVACHOL [Suspect]
     Active Substance: PRAVASTATIN SODIUM
     Dosage: UNK
  2. ZOCOR [Suspect]
     Active Substance: SIMVASTATIN
     Dosage: UNK
  3. MINOXIDIL. [Suspect]
     Active Substance: MINOXIDIL
     Dosage: UNK

REACTIONS (1)
  - Drug hypersensitivity [Unknown]
